FAERS Safety Report 4430854-4 (Version None)
Quarter: 2004Q3

REPORT INFORMATION
  Report Type: 
  Country: None (occurrence: None)
  Receive Date: 20040823
  Receipt Date: 20040816
  Transmission Date: 20050211
  Serious: Yes (Hospitalization)
  Sender: FDA-Public Use
  Company Number: US-GLAXOSMITHKLINE-A0522773A

PATIENT
  Sex: Male

DRUGS (4)
  1. PAXIL CR [Suspect]
     Indication: DEPRESSION
     Dosage: 25MG PER DAY
     Route: 048
     Dates: start: 20030331, end: 20030801
  2. LORTAB [Suspect]
     Route: 048
  3. BENADRYL [Suspect]
     Dosage: 75TAB SINGLE DOSE
     Route: 048
  4. NYQUIL [Suspect]
     Dosage: 1BT SINGLE DOSE
     Route: 048

REACTIONS (13)
  - ABASIA [None]
  - ANXIETY [None]
  - CARDIAC ARREST [None]
  - DEPRESSION [None]
  - INTENTIONAL OVERDOSE [None]
  - MOTOR DYSFUNCTION [None]
  - PANIC ATTACK [None]
  - PNEUMONIA [None]
  - SUICIDAL IDEATION [None]
  - SUICIDE ATTEMPT [None]
  - SYNCOPE [None]
  - VISION BLURRED [None]
  - VOMITING [None]
